FAERS Safety Report 16904318 (Version 1)
Quarter: 2019Q4

REPORT INFORMATION
  Report Type: Spontaneous
  Country: US (occurrence: US)
  Receive Date: 20191010
  Receipt Date: 20191010
  Transmission Date: 20200122
  Serious: No
  Sender: FDA-Public Use
  Company Number: US-TEVA-2019-US-1118033

PATIENT
  Age: 83 Year
  Sex: Female

DRUGS (3)
  1. CLONIDINE TDS [Suspect]
     Active Substance: CLONIDINE
     Route: 062
  2. CLONIDINE TDS [Suspect]
     Active Substance: CLONIDINE
     Indication: BLOOD PRESSURE MEASUREMENT
     Route: 062
     Dates: start: 201908
  3. CLONIDINE TDS [Suspect]
     Active Substance: CLONIDINE
     Route: 062

REACTIONS (4)
  - Application site erythema [Unknown]
  - Application site rash [Unknown]
  - Tendonitis [Unknown]
  - Drug ineffective [Unknown]
